FAERS Safety Report 18632022 (Version 1)
Quarter: 2020Q4

REPORT INFORMATION
  Report Type: Spontaneous
  Country: US (occurrence: US)
  Receive Date: 20201218
  Receipt Date: 20201218
  Transmission Date: 20210114
  Serious: No
  Sender: FDA-Public Use
  Company Number: US-SPECGX-T202001487

PATIENT
  Age: 62 Year
  Sex: Male
  Weight: 64 kg

DRUGS (4)
  1. OXYCODONE [Suspect]
     Active Substance: OXYCODONE
     Dosage: 15 MILLIGRAM, TID (ONE QUARTER OF EACH TABLET)
     Route: 048
  2. OXYCODONE [Suspect]
     Active Substance: OXYCODONE
     Indication: PAIN
     Dosage: 15 MILLIGRAM, SIX TIMES A DAY
     Route: 048
  3. FENTANYL TRANSDERMAL SYSTEM [Suspect]
     Active Substance: FENTANYL
     Indication: PAIN
     Dosage: UNK
     Route: 062
     Dates: start: 2020, end: 2020
  4. OXYCODONE [Suspect]
     Active Substance: OXYCODONE
     Dosage: UNK (WOULD TAKE 1 TABLET, SOMETIMES)
     Route: 065

REACTIONS (5)
  - Treatment noncompliance [Unknown]
  - Skin discolouration [Unknown]
  - Product solubility abnormal [Unknown]
  - Drug ineffective [Unknown]
  - Wrong technique in product usage process [Unknown]

NARRATIVE: CASE EVENT DATE: 2020
